FAERS Safety Report 11742668 (Version 1)
Quarter: 2015Q4

REPORT INFORMATION
  Report Type: Spontaneous
  Country: US (occurrence: None)
  Receive Date: 20151113
  Receipt Date: 20151113
  Transmission Date: 20160304
  Serious: Yes (Hospitalization)
  Sender: FDA-Public Use
  Company Number: None

PATIENT
  Age: 54 Year
  Sex: Male
  Weight: 91 kg

DRUGS (7)
  1. SPIRONLACTONE [Concomitant]
  2. CEFTRIAXONE. [Concomitant]
     Active Substance: CEFTRIAXONE
  3. LOSARTAN. [Concomitant]
     Active Substance: LOSARTAN
  4. VANCOMYCIN [Suspect]
     Active Substance: VANCOMYCIN
     Indication: ENTEROCOCCAL BACTERAEMIA
     Route: 042
     Dates: start: 20151028, end: 20151101
  5. FUROSEMIDE. [Concomitant]
     Active Substance: FUROSEMIDE
  6. MORPHINE IR [Concomitant]
     Active Substance: MORPHINE
  7. CONSTULOSE [Concomitant]
     Active Substance: LACTULOSE

REACTIONS (1)
  - Acute kidney injury [None]

NARRATIVE: CASE EVENT DATE: 20151101
